FAERS Safety Report 17146992 (Version 2)
Quarter: 2020Q2

REPORT INFORMATION
  Report Type: Spontaneous
  Country: IT (occurrence: IT)
  Receive Date: 20191212
  Receipt Date: 20200427
  Transmission Date: 20200713
  Serious: Yes (Other)
  Sender: FDA-Public Use
  Company Number: NVSC2019IT063000

PATIENT
  Age: 32 Year
  Sex: Female

DRUGS (2)
  1. RIVOTRIL [Suspect]
     Active Substance: CLONAZEPAM
     Indication: INTENTIONAL SELF-INJURY
     Dosage: 10 ML, TOTAL
     Route: 048
     Dates: start: 20191009, end: 20191009
  2. ALPRAZOLAM. [Suspect]
     Active Substance: ALPRAZOLAM
     Indication: INTENTIONAL SELF-INJURY
     Dosage: 10 DF, TOTAL
     Route: 048
     Dates: start: 20191009, end: 20191009

REACTIONS (2)
  - Intentional self-injury [Recovered/Resolved]
  - Sopor [Recovered/Resolved]

NARRATIVE: CASE EVENT DATE: 20191010
